FAERS Safety Report 6494329-3 (Version None)
Quarter: 2009Q4

REPORT INFORMATION
  Report Type: 
  Country: None (occurrence: None)
  Receive Date: 20091214
  Receipt Date: 20090209
  Transmission Date: 20100525
  Serious: No
  Sender: FDA-Public Use
  Company Number: US-BRISTOL-MYERS SQUIBB COMPANY-14498711

PATIENT
  Sex: Female

DRUGS (1)
  1. ABILIFY [Suspect]
     Indication: BIPOLAR DISORDER
     Dosage: DOSE WAS INCREASED TO 40MG DAILY THEN DECREASED TO 20MG DAILY

REACTIONS (2)
  - ANXIETY [None]
  - PANIC ATTACK [None]
